FAERS Safety Report 11602882 (Version 1)
Quarter: 2015Q4

REPORT INFORMATION
  Report Type: Spontaneous
  Country: US (occurrence: US)
  Receive Date: 20151006
  Receipt Date: 20151006
  Transmission Date: 20160304
  Serious: No
  Sender: FDA-Public Use
  Company Number: US-AMGEN-USASP2015089868

PATIENT
  Sex: Female

DRUGS (1)
  1. PROLIA [Suspect]
     Active Substance: DENOSUMAB
     Indication: PRODUCT USED FOR UNKNOWN INDICATION
     Dosage: UNK
     Route: 065
     Dates: start: 201502

REACTIONS (7)
  - Abdominal pain [Unknown]
  - Skin discolouration [Unknown]
  - Discomfort [Unknown]
  - Hypoglycaemia [Unknown]
  - Night sweats [Unknown]
  - Abdominal distension [Unknown]
  - Chills [Unknown]

NARRATIVE: CASE EVENT DATE: 20150819
